FAERS Safety Report 7625906-1 (Version None)
Quarter: 2011Q3

REPORT INFORMATION
  Report Type: 
  Country: None (occurrence: None)
  Receive Date: 20110721
  Receipt Date: 20110721
  Transmission Date: 20111222
  Serious: Yes (Other)
  Sender: FDA-Public Use
  Company Number: None

PATIENT
  Sex: Female
  Weight: 48 kg

DRUGS (5)
  1. SINGULAIR [Suspect]
     Indication: ASTHMA
     Dosage: ONE TABLET
     Route: 048
     Dates: start: 20101110, end: 20110218
  2. SINGULAIR [Suspect]
     Indication: RHINITIS ALLERGIC
     Dosage: ONE TABLET
     Route: 048
     Dates: start: 20101110, end: 20110218
  3. XOPENEX [Interacting]
     Route: 045
  4. XOPENEX HFA [Interacting]
     Route: 048
  5. VALPROIC ACID [Interacting]

REACTIONS (3)
  - MOOD ALTERED [None]
  - NIGHTMARE [None]
  - SLEEP DISORDER [None]
